FAERS Safety Report 4606195-9 (Version None)
Quarter: 2005Q1

REPORT INFORMATION
  Report Type: 
  Country: None (occurrence: None)
  Receive Date: 20050115
  Receipt Date: 20040617
  Transmission Date: 20050727
  Serious: Yes (Other)
  Sender: FDA-Public Use
  Company Number: A03200401961

PATIENT
  Age: 4 Year
  Sex: Male

DRUGS (1)
  1. AMBIEN [Suspect]
     Dosage: ORAL
     Route: 048
     Dates: start: 20040609, end: 20040609

REACTIONS (4)
  - ABNORMAL BEHAVIOUR [None]
  - ACCIDENTAL EXPOSURE [None]
  - COORDINATION ABNORMAL [None]
  - SOMNOLENCE [None]
